FAERS Safety Report 24128251 (Version 1)
Quarter: 2024Q3

REPORT INFORMATION
  Report Type: Report from Study
  Country: FR (occurrence: FR)
  Receive Date: 20240723
  Receipt Date: 20240723
  Transmission Date: 20241016
  Serious: Yes (Other)
  Sender: AMGEN
  Company Number: FR-AMGEN-FRANI2024140501

PATIENT
  Age: 51 Year
  Sex: Female

DRUGS (8)
  1. TRASTUZUMAB [Suspect]
     Active Substance: TRASTUZUMAB
     Indication: HER2 positive breast cancer
     Dosage: 600 MILLIGRAM, Q3WK/ CUMULATIVE DOSE TO FIRST REACTION (NUMBER)  600 MG
     Route: 058
     Dates: start: 20210120
  2. TRASTUZUMAB [Suspect]
     Active Substance: TRASTUZUMAB
     Indication: HER2 positive breast cancer
  3. CAPECITABINE [Suspect]
     Active Substance: CAPECITABINE
     Indication: HER2 positive breast cancer
     Dosage: 2000 MG, DAILY
     Route: 048
     Dates: start: 20210120, end: 20210205
  4. CAPECITABINE [Suspect]
     Active Substance: CAPECITABINE
     Indication: HER2 positive breast cancer
     Dosage: 1500 MG, 1X/DAY
     Route: 048
     Dates: start: 20210303
  5. TUCATINIB [Suspect]
     Active Substance: TUCATINIB
     Indication: HER2 positive breast cancer
     Dosage: 600 MILLIGRAM, BID
     Route: 048
     Dates: start: 20210120, end: 20210127
  6. TUCATINIB [Suspect]
     Active Substance: TUCATINIB
     Indication: HER2 positive breast cancer
     Dosage: 400 MG, 1X/DAY
     Route: 048
     Dates: start: 20210303
  7. LAPATINIB [Concomitant]
     Active Substance: LAPATINIB
     Dosage: 50 MG, 5 CAPSULES/DAY
     Route: 048
  8. IRBESARTAN [Concomitant]
     Active Substance: IRBESARTAN
     Dosage: 1/2 TABLET
     Route: 048

REACTIONS (3)
  - Botryomycosis [Recovered/Resolved]
  - Eczema [Recovered/Resolved]
  - Incorrect route of product administration [Unknown]

NARRATIVE: CASE EVENT DATE: 20210120
